FAERS Safety Report 11414083 (Version 2)
Quarter: 2015Q3

REPORT INFORMATION
  Report Type: Spontaneous
  Country: BR (occurrence: BR)
  Receive Date: 20150824
  Receipt Date: 20150903
  Transmission Date: 20151125
  Serious: Yes (Hospitalization, Other)
  Sender: FDA-Public Use
  Company Number: BR-MYLANLABS-2015M1028319

PATIENT

DRUGS (1)
  1. SUNITINIB [Suspect]
     Active Substance: SUNITINIB
     Indication: RENAL CANCER METASTATIC
     Dosage: 50 MILLIGRAM(S)
     Route: 065
     Dates: start: 201004

REACTIONS (2)
  - Hypertension [Recovered/Resolved]
  - Aortic dissection [Recovered/Resolved]
